FAERS Safety Report 7705292-9 (Version None)
Quarter: 2011Q3

REPORT INFORMATION
  Report Type: 
  Country: None (occurrence: None)
  Receive Date: 20110822
  Receipt Date: 20110822
  Transmission Date: 20111222
  Serious: Yes (Hospitalization)
  Sender: FDA-Public Use
  Company Number: None

PATIENT
  Age: 28 Year
  Sex: Male

DRUGS (1)
  1. CEFTRIAXONE [Suspect]
     Indication: WOUND INFECTION
     Dosage: 1 GM EVERY DAY IV
     Route: 042
     Dates: start: 20110808, end: 20110808

REACTIONS (3)
  - FLUSHING [None]
  - ANGIOEDEMA [None]
  - PRURITUS [None]
